FAERS Safety Report 8149012 (Version 2)
Quarter: 2013Q2

REPORT INFORMATION
  Report Type: Spontaneous
  Country: US (occurrence: US)
  Receive Date: 20110922
  Receipt Date: 20130408
  Transmission Date: 20140414
  Serious: Yes (Other)
  Sender: FDA-Public Use
  Company Number: US-ASTRAZENECA-2011SE12500

PATIENT
  Sex: 0

DRUGS (7)
  1. SEROQUEL [Suspect]
     Route: 048
     Dates: start: 20080313
  2. SEROQUEL [Suspect]
     Route: 048
     Dates: start: 20080625
  3. WELLBUTRIN XL [Concomitant]
     Route: 048
     Dates: start: 20080226
  4. ROZEREM [Concomitant]
     Route: 048
     Dates: start: 20080226
  5. BALACET [Concomitant]
     Dosage: ONE TABLET EVERY EIGHT HOURS AS NEEDED
     Route: 048
     Dates: start: 20080416
  6. CELEBREX [Concomitant]
     Route: 048
     Dates: start: 20080416
  7. TRAMADOL [Concomitant]
     Dosage: ONE TABLET TWO TIMES A DAY FOR TWO WEEKS
     Route: 048
     Dates: start: 20080416

REACTIONS (3)
  - Pancreatitis [Unknown]
  - Diabetic coma [Unknown]
  - Type 2 diabetes mellitus [Unknown]
